FAERS Safety Report 13966720 (Version 1)
Quarter: 2017Q3

REPORT INFORMATION
  Report Type: Spontaneous
  Country: US (occurrence: US)
  Receive Date: 20170913
  Receipt Date: 20170913
  Transmission Date: 20171128
  Serious: Yes (Disabling, Other)
  Sender: FDA-Public Use
  Company Number: None

PATIENT
  Age: 67 Year
  Sex: Female
  Weight: 60.3 kg

DRUGS (8)
  1. BIOTIN [Concomitant]
     Active Substance: BIOTIN
  2. VITAMIN D [Concomitant]
     Active Substance: CHOLECALCIFEROL
  3. COQ10 [Concomitant]
     Active Substance: UBIDECARENONE
  4. ATORVASTATIN [Concomitant]
     Active Substance: ATORVASTATIN
  5. MULTIVITAMINS [Concomitant]
     Active Substance: VITAMINS
  6. TOPIRAMATE. [Suspect]
     Active Substance: TOPIRAMATE
     Indication: MIGRAINE
     Dosage: ?          QUANTITY:1 TABLET(S);?
     Route: 048
     Dates: start: 20160804, end: 20170830
  7. FISH OIL [Concomitant]
     Active Substance: FISH OIL
  8. LEVOTHYROXINE. [Concomitant]
     Active Substance: LEVOTHYROXINE

REACTIONS (6)
  - Alopecia [None]
  - Unevaluable event [None]
  - Weight decreased [None]
  - Gastric pH decreased [None]
  - Depression [None]
  - Fatigue [None]

NARRATIVE: CASE EVENT DATE: 20170808
